FAERS Safety Report 5368859-1 (Version None)
Quarter: 2007Q2

REPORT INFORMATION
  Report Type: 
  Country: None (occurrence: None)
  Receive Date: 20070625
  Receipt Date: 20070305
  Transmission Date: 20071010
  Serious: No
  Sender: FDA-Public Use
  Company Number: US-ASTRAZENECA-2004UW18345

PATIENT
  Sex: Male

DRUGS (1)
  1. CRESTOR [Suspect]
     Route: 048

REACTIONS (3)
  - BLOOD CREATINE PHOSPHOKINASE INCREASED [None]
  - PAIN IN EXTREMITY [None]
  - THERAPEUTIC RESPONSE UNEXPECTED [None]
